FAERS Safety Report 12092118 (Version 1)
Quarter: 2016Q1

REPORT INFORMATION
  Report Type: Spontaneous
  Country: KR (occurrence: KR)
  Receive Date: 20160219
  Receipt Date: 20160219
  Transmission Date: 20160526
  Serious: Yes (Hospitalization)
  Sender: FDA-Public Use
  Company Number: KR-AMGEN-KORCT2016019372

PATIENT
  Age: 64 Year
  Sex: Female
  Weight: 65.8 kg

DRUGS (32)
  1. FILGRASTIM [Concomitant]
     Active Substance: FILGRASTIM
     Dosage: 150 MCG, UNK
     Route: 058
     Dates: start: 20151113, end: 20151114
  2. CYCLOPHOSPHAMIDE. [Concomitant]
     Active Substance: CYCLOPHOSPHAMIDE
     Dosage: 765 MG, UNK
     Route: 042
     Dates: start: 20151219, end: 20151219
  3. DOCETAXEL. [Concomitant]
     Active Substance: DOCETAXEL
     Dosage: 115 MG, UNK
     Route: 042
     Dates: start: 20151128, end: 20151128
  4. DOCETAXEL. [Concomitant]
     Active Substance: DOCETAXEL
     Dosage: 115 MG, UNK
     Route: 042
     Dates: start: 20160130, end: 20160130
  5. DOXORUBICIN [Concomitant]
     Active Substance: DOXORUBICIN
     Dosage: 76 MG, UNK
     Route: 042
     Dates: start: 20151128, end: 20151128
  6. G-LASTA [Suspect]
     Active Substance: PEGFILGRASTIM
     Dosage: 6 MG, 1X/3WEEKS
     Route: 058
     Dates: start: 20151129, end: 20151129
  7. G-LASTA [Suspect]
     Active Substance: PEGFILGRASTIM
     Dosage: 6 MG, 1X/3WEEKS
     Route: 058
     Dates: start: 20151220, end: 20151220
  8. DOXORUBICIN [Concomitant]
     Active Substance: DOXORUBICIN
     Dosage: 76 MG, UNK
     Route: 042
     Dates: start: 20160130, end: 20160130
  9. CYCLOPHOSPHAMIDE. [Concomitant]
     Active Substance: CYCLOPHOSPHAMIDE
     Dosage: 765 MG, UNK
     Route: 042
     Dates: start: 20160109, end: 20160109
  10. CYCLOPHOSPHAMIDE. [Concomitant]
     Active Substance: CYCLOPHOSPHAMIDE
     Dosage: 765 MG, UNK
     Route: 042
     Dates: start: 20160130, end: 20160130
  11. CEFOBACTAM [Concomitant]
     Active Substance: CEFOPERAZONE SODIUM\SULBACTAM SODIUM
     Dosage: 2 G, UNK
     Route: 042
     Dates: start: 20151224, end: 20151226
  12. G-LASTA [Suspect]
     Active Substance: PEGFILGRASTIM
     Dosage: 6 MG, 1X/3WEEKS
     Route: 058
     Dates: start: 20160131, end: 20160131
  13. FILGRASTIM [Concomitant]
     Active Substance: FILGRASTIM
     Dosage: 150 MCG, UNK
     Route: 058
     Dates: start: 20151204, end: 20151205
  14. DOCETAXEL. [Concomitant]
     Active Substance: DOCETAXEL
     Dosage: 115 MG, UNK
     Route: 042
     Dates: start: 20151219, end: 20151219
  15. TOBRAMYCIN. [Concomitant]
     Active Substance: TOBRAMYCIN
     Dosage: 200 MG, UNK
     Route: 042
     Dates: start: 20160115, end: 20160116
  16. G-LASTA [Suspect]
     Active Substance: PEGFILGRASTIM
     Indication: FEBRILE NEUTROPENIA
     Dosage: 6 MG, 1X/3WEEKS
     Route: 058
     Dates: start: 20151108, end: 20151108
  17. FILGRASTIM [Concomitant]
     Active Substance: FILGRASTIM
     Dosage: 150 MCG, UNK
     Route: 058
     Dates: start: 20160115, end: 20160116
  18. DOCETAXEL. [Concomitant]
     Active Substance: DOCETAXEL
     Dosage: 115 MG, UNK
     Route: 042
     Dates: start: 20151107, end: 20151107
  19. DOXORUBICIN [Concomitant]
     Active Substance: DOXORUBICIN
     Dosage: 76 MG, UNK
     Route: 042
     Dates: start: 20160109, end: 20160109
  20. CYCLOPHOSPHAMIDE. [Concomitant]
     Active Substance: CYCLOPHOSPHAMIDE
     Dosage: 765 MG, UNK
     Route: 042
     Dates: start: 20151107, end: 20151107
  21. CEFOBACTAM [Concomitant]
     Active Substance: CEFOPERAZONE SODIUM\SULBACTAM SODIUM
     Dosage: 2 G, UNK
     Route: 042
     Dates: start: 20151113, end: 20151114
  22. CEFOBACTAM [Concomitant]
     Active Substance: CEFOPERAZONE SODIUM\SULBACTAM SODIUM
     Dosage: 2 G, UNK
     Route: 042
     Dates: start: 20160115, end: 20160116
  23. TOBRAMYCIN. [Concomitant]
     Active Substance: TOBRAMYCIN
     Dosage: 200 MG, UNK
     Route: 042
     Dates: start: 20151113, end: 20151114
  24. G-LASTA [Suspect]
     Active Substance: PEGFILGRASTIM
     Dosage: 6 MG, 1X/3WEEKS
     Route: 058
     Dates: start: 20160110, end: 20160110
  25. DOXORUBICIN [Concomitant]
     Active Substance: DOXORUBICIN
     Dosage: 76 MG, UNK
     Route: 042
     Dates: start: 20151219, end: 20151219
  26. FILGRASTIM [Concomitant]
     Active Substance: FILGRASTIM
     Dosage: 150 MCG, UNK
     Route: 058
     Dates: start: 20151224, end: 20151226
  27. DOCETAXEL. [Concomitant]
     Active Substance: DOCETAXEL
     Dosage: 115 MG, UNK
     Route: 042
     Dates: start: 20160109, end: 20160109
  28. DOXORUBICIN [Concomitant]
     Active Substance: DOXORUBICIN
     Dosage: 76 MG, UNK
     Route: 042
     Dates: start: 20151107, end: 20151107
  29. CYCLOPHOSPHAMIDE. [Concomitant]
     Active Substance: CYCLOPHOSPHAMIDE
     Dosage: 765 MG, UNK
     Route: 042
     Dates: start: 20151128, end: 20151128
  30. CEFOBACTAM [Concomitant]
     Active Substance: CEFOPERAZONE SODIUM\SULBACTAM SODIUM
     Dosage: 2 G, UNK
     Route: 042
     Dates: start: 20151204, end: 20151205
  31. TOBRAMYCIN. [Concomitant]
     Active Substance: TOBRAMYCIN
     Dosage: 200 MG, UNK
     Route: 042
     Dates: start: 20151204, end: 20151205
  32. TOBRAMYCIN. [Concomitant]
     Active Substance: TOBRAMYCIN
     Dosage: 200 MG, UNK
     Route: 042
     Dates: start: 20151224, end: 20151226

REACTIONS (1)
  - Neutropenia [Recovered/Resolved]

NARRATIVE: CASE EVENT DATE: 20160205
